FAERS Safety Report 6436206-X (Version None)
Quarter: 2009Q4

REPORT INFORMATION
  Report Type: 
  Country: None (occurrence: None)
  Receive Date: 20091111
  Receipt Date: 20091106
  Transmission Date: 20100525
  Serious: Yes (Life-Threatening, Hospitalization)
  Sender: FDA-Public Use
  Company Number: US-MERCK-0910USA01963

PATIENT
  Age: 51 Year
  Sex: Female

DRUGS (1)
  1. ZOLINZA [Suspect]
     Indication: EOSINOPHILIA
     Route: 048
     Dates: start: 20090801, end: 20090930

REACTIONS (6)
  - ABDOMINAL PAIN [None]
  - DIARRHOEA [None]
  - INTESTINAL INFARCTION [None]
  - MESENTERIC OCCLUSION [None]
  - MUSCLE SPASMS [None]
  - UNDERDOSE [None]
